FAERS Safety Report 8773682 (Version 2)
Quarter: 2013Q4

REPORT INFORMATION
  Report Type: Spontaneous
  Country: US (occurrence: US)
  Receive Date: 20120907
  Receipt Date: 20131101
  Transmission Date: 20140711
  Serious: No
  Sender: FDA-Public Use
  Company Number: US-009507513-1208USA009987

PATIENT
  Age: 3 Year
  Sex: Male
  Weight: 17.23 kg

DRUGS (2)
  1. CLARITIN CHEWABLE TABLETS [Suspect]
     Dosage: 5 MG, QD
     Route: 048
     Dates: start: 2011
  2. CLARITIN CHEWABLE TABLETS [Suspect]
     Dosage: 5 MG, BID
     Route: 048
     Dates: start: 20120810

REACTIONS (1)
  - Overdose [Unknown]
